FAERS Safety Report 10232341 (Version 3)
Quarter: 2014Q2

REPORT INFORMATION
  Report Type: Spontaneous
  Country: JP (occurrence: JP)
  Receive Date: 20140612
  Receipt Date: 20140617
  Transmission Date: 20141212
  Serious: Yes (Hospitalization)
  Sender: FDA-Public Use
  Company Number: PHHY2014JP004637

PATIENT
  Age: 70 Year
  Sex: Male

DRUGS (2)
  1. TASIGNA [Suspect]
     Indication: CHRONIC MYELOID LEUKAEMIA
     Dosage: 600 MG, DAILY
     Route: 048
     Dates: start: 20130328, end: 20130424
  2. TASIGNA [Suspect]
     Dosage: 400 MG, DAILY
     Route: 048
     Dates: start: 20130425

REACTIONS (5)
  - Immune system disorder [Recovered/Resolved]
  - Lung disorder [Recovering/Resolving]
  - Dyspnoea [Recovering/Resolving]
  - Nephrotic syndrome [Recovered/Resolved]
  - Malaise [Recovered/Resolved]
